FAERS Safety Report 5009513-5 (Version None)
Quarter: 2006Q2

REPORT INFORMATION
  Report Type: 
  Country: None (occurrence: None)
  Receive Date: 20060524
  Receipt Date: 20060517
  Transmission Date: 20061013
  Serious: Yes (Hospitalization)
  Sender: FDA-Public Use
  Company Number: AU-AVENTIS-200612795EU

PATIENT
  Age: 79 Year
  Sex: Female

DRUGS (1)
  1. NATRILIX - SLOW RELEASE [Suspect]
     Route: 048
     Dates: start: 20050515, end: 20051102

REACTIONS (4)
  - DYSPNOEA [None]
  - HYPOKALAEMIA [None]
  - HYPONATRAEMIA [None]
  - NAUSEA [None]
